FAERS Safety Report 11492605 (Version 1)
Quarter: 2015Q3

REPORT INFORMATION
  Report Type: Spontaneous
  Country: US (occurrence: US)
  Receive Date: 20150910
  Receipt Date: 20150910
  Transmission Date: 20151125
  Serious: Yes (Other)
  Sender: FDA-Public Use
  Company Number: US-TAKEDA-2014TJP016331

PATIENT
  Sex: Female
  Weight: 88.43 kg

DRUGS (1)
  1. PREVACID [Suspect]
     Active Substance: LANSOPRAZOLE
     Indication: GASTROOESOPHAGEAL REFLUX DISEASE
     Dosage: UNK, QD
     Route: 065
     Dates: start: 1995

REACTIONS (3)
  - Peripheral swelling [Unknown]
  - Drug ineffective [Unknown]
  - Rash [Unknown]
